FAERS Safety Report 7504845-0 (Version None)
Quarter: 2011Q2

REPORT INFORMATION
  Report Type: 
  Country: None (occurrence: None)
  Receive Date: 20110526
  Receipt Date: 20110523
  Transmission Date: 20111010
  Serious: Yes (Other)
  Sender: FDA-Public Use
  Company Number: IN-BRISTOL-MYERS SQUIBB COMPANY-15769359

PATIENT
  Age: 14 Year
  Sex: Female

DRUGS (3)
  1. BUSULFAN [Suspect]
  2. ANTI-THYMOCYTE GLOBULIN NOS [Suspect]
  3. CYCLOPHOSPHAMIDE [Suspect]

REACTIONS (1)
  - VENOOCCLUSIVE LIVER DISEASE [None]
